FAERS Safety Report 15325993 (Version 1)
Quarter: 2018Q3

REPORT INFORMATION
  Report Type: Spontaneous
  Country: US (occurrence: US)
  Receive Date: 20180823
  Receipt Date: 20180823
  Transmission Date: 20181010
  Serious: Yes (Hospitalization)
  Sender: FDA-Public Use
  Company Number: None

PATIENT
  Age: 80 Year
  Sex: Male
  Weight: 62.55 kg

DRUGS (22)
  1. BICALUTAMIDE. [Concomitant]
     Active Substance: BICALUTAMIDE
  2. DULCOLAX NOS [Concomitant]
     Active Substance: BISACODYL OR DOCUSATE SODIUM
  3. FENOFIBRATE. [Concomitant]
     Active Substance: FENOFIBRATE
  4. CALCIUM CARBONATE + D [Concomitant]
  5. FERROUS SULFATE. [Concomitant]
     Active Substance: FERROUS SULFATE
  6. PROCTOCORT [Concomitant]
     Active Substance: HYDROCORTISONE
  7. PRILOSEC [Concomitant]
     Active Substance: OMEPRAZOLE MAGNESIUM
  8. PREDNISONE. [Concomitant]
     Active Substance: PREDNISONE
  9. DILTIAZEM. [Concomitant]
     Active Substance: DILTIAZEM
  10. ZYTIGA [Suspect]
     Active Substance: ABIRATERONE ACETATE
     Indication: PROSTATE CANCER
     Route: 048
     Dates: start: 20180723
  11. ACETAMINOPHEN. [Concomitant]
     Active Substance: ACETAMINOPHEN
  12. PROCRIT [Concomitant]
     Active Substance: ERYTHROPOIETIN
  13. TAB?A?VITE [Concomitant]
  14. JUVEN [Concomitant]
     Active Substance: .BETA.-HYDROXYISOVALERIC ACID\ARGININE\GLUTAMINE
  15. LIDODERM [Concomitant]
     Active Substance: LIDOCAINE
  16. XGEVA [Concomitant]
     Active Substance: DENOSUMAB
  17. ZYTIGA [Suspect]
     Active Substance: ABIRATERONE ACETATE
     Indication: BONE CANCER
     Route: 048
     Dates: start: 20180723
  18. NORVASC [Concomitant]
     Active Substance: AMLODIPINE BESYLATE
  19. PROMOD [Concomitant]
  20. COLLAGENASE SANTYL [Concomitant]
     Active Substance: COLLAGENASE CLOSTRIDIUM HISTOLYTICUM
  21. ATORVASTATIN [Concomitant]
     Active Substance: ATORVASTATIN
  22. LASIX [Concomitant]
     Active Substance: FUROSEMIDE

REACTIONS (1)
  - Urinary tract infection [None]

NARRATIVE: CASE EVENT DATE: 20180820
